FAERS Safety Report 12090078 (Version 1)
Quarter: 2016Q1

REPORT INFORMATION
  Report Type: Spontaneous
  Country: US (occurrence: US)
  Receive Date: 20160218
  Receipt Date: 20160218
  Transmission Date: 20160526
  Serious: No
  Sender: FDA-Public Use
  Company Number: US-WATSON-2015-28493

PATIENT
  Sex: Female
  Weight: 60.78 kg

DRUGS (2)
  1. SERTRALINE HCL [Suspect]
     Active Substance: SERTRALINE HYDROCHLORIDE
     Indication: ANXIETY
     Dosage: 50 MG, DAILY
     Route: 048
  2. PROPRANOLOL                        /00030002/ [Concomitant]
     Indication: NERVOUSNESS
     Dosage: 10 MG, PRN
     Route: 048

REACTIONS (1)
  - Tremor [Not Recovered/Not Resolved]
